FAERS Safety Report 14263088 (Version 1)
Quarter: 2017Q4

REPORT INFORMATION
  Report Type: Spontaneous
  Country: JP (occurrence: JP)
  Receive Date: 20171208
  Receipt Date: 20171208
  Transmission Date: 20180321
  Serious: Yes (Hospitalization, Other)
  Sender: FDA-Public Use
  Company Number: JP-AMGEN-JPNSP2017136203

PATIENT
  Age: 71 Year
  Sex: Male
  Weight: 70 kg

DRUGS (13)
  1. OXALIPLATIN. [Suspect]
     Active Substance: OXALIPLATIN
     Indication: METASTASES TO LYMPH NODES
     Dosage: 100 MG, Q2WEEKS
     Route: 041
     Dates: start: 20170606, end: 20170801
  2. FLUOROURACIL. [Suspect]
     Active Substance: FLUOROURACIL
     Indication: METASTASES TO LYMPH NODES
     Dosage: 3800 MG, Q2WK
     Route: 041
     Dates: start: 20170411, end: 20170502
  3. FLUOROURACIL. [Suspect]
     Active Substance: FLUOROURACIL
     Dosage: 600 MG, Q2WK
     Route: 040
     Dates: start: 20170606, end: 20170801
  4. CALCIUM FOLINATE [Suspect]
     Active Substance: LEUCOVORIN CALCIUM
     Indication: RECTAL CANCER
     Dosage: 350 MG, Q2WEEKS
     Route: 041
     Dates: start: 20170411, end: 20170502
  5. VECTIBIX [Suspect]
     Active Substance: PANITUMUMAB
     Indication: METASTASES TO LYMPH NODES
     Dosage: 400 MG, Q2WEEKS
     Route: 041
     Dates: start: 20170411, end: 20170502
  6. CALCIUM FOLINATE [Suspect]
     Active Substance: LEUCOVORIN CALCIUM
     Dosage: UNK UNK, Q2WEEKS
     Route: 041
     Dates: start: 20170829
  7. VECTIBIX [Suspect]
     Active Substance: PANITUMUMAB
     Indication: RECTAL CANCER
     Dosage: 400 MG, Q2WEEKS
     Route: 041
     Dates: start: 20170606, end: 20170801
  8. OXALIPLATIN. [Suspect]
     Active Substance: OXALIPLATIN
     Indication: RECTAL CANCER
     Dosage: 100 MG, Q2WEEKS
     Route: 041
     Dates: start: 20170411, end: 20170502
  9. CALCIUM FOLINATE [Suspect]
     Active Substance: LEUCOVORIN CALCIUM
     Indication: METASTASES TO LYMPH NODES
     Dosage: 325 MG, Q2WEEKS
     Route: 041
     Dates: start: 20170606, end: 20170801
  10. FLUOROURACIL. [Suspect]
     Active Substance: FLUOROURACIL
     Indication: RECTAL CANCER
     Dosage: 650 MG, Q2WK
     Route: 040
     Dates: start: 20170411, end: 20170502
  11. FLUOROURACIL. [Suspect]
     Active Substance: FLUOROURACIL
     Dosage: UNK UNK, Q2WK
     Route: 041
     Dates: start: 20170829
  12. FLUOROURACIL. [Suspect]
     Active Substance: FLUOROURACIL
     Dosage: 3250 MG, Q2WK
     Route: 041
     Dates: start: 20170606, end: 20170801
  13. FLUOROURACIL. [Suspect]
     Active Substance: FLUOROURACIL
     Dosage: UNK UNK, Q2WK
     Route: 040
     Dates: start: 20170829

REACTIONS (2)
  - Embolism [Recovered/Resolved]
  - Neutrophil count decreased [Unknown]

NARRATIVE: CASE EVENT DATE: 20170523
